FAERS Safety Report 16747629 (Version 1)
Quarter: 2019Q3

REPORT INFORMATION
  Report Type: Spontaneous
  Country: FR (occurrence: FR)
  Receive Date: 20190827
  Receipt Date: 20190827
  Transmission Date: 20191005
  Serious: Yes (Hospitalization)
  Sender: FDA-Public Use
  Company Number: FR-TEVA-2019-FR-1097087

PATIENT
  Age: 79 Year
  Sex: Female
  Weight: 95 kg

DRUGS (1)
  1. FURADANTINE 50 MG, G?LULE [Suspect]
     Active Substance: NITROFURANTOIN
     Indication: URINARY TRACT INFECTION
     Dosage: 300 MILLIGRAM FOR EVERY 1 DAYS
     Route: 048
     Dates: start: 20190702, end: 20190708

REACTIONS (2)
  - Acute kidney injury [Recovering/Resolving]
  - Vascular purpura [Recovered/Resolved]

NARRATIVE: CASE EVENT DATE: 20190710
